FAERS Safety Report 6535959-X (Version None)
Quarter: 2010Q1

REPORT INFORMATION
  Report Type: 
  Country: None (occurrence: None)
  Receive Date: 20100113
  Receipt Date: 20100111
  Transmission Date: 20100710
  Serious: Yes (Hospitalization)
  Sender: FDA-Public Use
  Company Number: A0839011A

PATIENT

DRUGS (1)
  1. ARIXTRA [Suspect]
     Indication: ANTICOAGULANT THERAPY
     Route: 058

REACTIONS (1)
  - DRUG SPECIFIC ANTIBODY PRESENT [None]
